FAERS Safety Report 21435555 (Version 1)
Quarter: 2022Q4

REPORT INFORMATION
  Report Type: Spontaneous
  Country: US (occurrence: US)
  Receive Date: 20221010
  Receipt Date: 20221010
  Transmission Date: 20230113
  Serious: No
  Sender: FDA-Public Use
  Company Number: US-SA-SAC20221010000303

PATIENT
  Sex: Female
  Weight: 63 kg

DRUGS (7)
  1. DUPIXENT [Suspect]
     Active Substance: DUPILUMAB
     Indication: Dermatitis atopic
     Dosage: 300 MG, QOW
  2. PARAFFIN [Concomitant]
     Active Substance: PARAFFIN
  3. TRIAMCINOLONE ACETONIDE [Concomitant]
     Active Substance: TRIAMCINOLONE ACETONIDE
  4. VITAMIN D NOS [Concomitant]
     Active Substance: VITAMIN D NOS
     Dosage: VITAMIN D-400 10 MCG TABLET
  5. IRON [Concomitant]
     Active Substance: IRON
  6. IBUPROFEN [Concomitant]
     Active Substance: IBUPROFEN
  7. VITAMIN C [Concomitant]
     Active Substance: ASCORBIC ACID

REACTIONS (1)
  - Incorrect dose administered [Unknown]
